FAERS Safety Report 12148816 (Version 1)
Quarter: 2016Q1

REPORT INFORMATION
  Report Type: Spontaneous
  Country: US (occurrence: US)
  Receive Date: 20160304
  Receipt Date: 20160304
  Transmission Date: 20160526
  Serious: Yes (Other)
  Sender: FDA-Public Use
  Company Number: US-BOEHRINGER INGELHEIM PHARMACEUTICALS INC-2016BV000237

PATIENT
  Age: 52 Year
  Sex: Male

DRUGS (3)
  1. LABETALOL [Concomitant]
     Active Substance: LABETALOL\LABETALOL HYDROCHLORIDE
  2. ACYCLOVIR. [Suspect]
     Active Substance: ACYCLOVIR
     Indication: INFECTION PROPHYLAXIS
     Dosage: 600 MG, Q12H
     Route: 042
  3. VALACYCLOVIR [Concomitant]
     Active Substance: VALACYCLOVIR HYDROCHLORIDE
     Indication: HERPES ZOSTER
     Dosage: 1 G, TID

REACTIONS (4)
  - Neurotoxicity [Recovered/Resolved]
  - Hallucination [Recovered/Resolved]
  - Altered state of consciousness [Recovered/Resolved]
  - Status epilepticus [Recovered/Resolved]
